FAERS Safety Report 14317046 (Version 2)
Quarter: 2018Q1

REPORT INFORMATION
  Report Type: Report from Study
  Country: IT (occurrence: IT)
  Receive Date: 20171222
  Receipt Date: 20180112
  Transmission Date: 20180509
  Serious: Yes (Hospitalization)
  Sender: FDA-Public Use
  Company Number: PHHY2017IT181793

PATIENT
  Age: 60 Year
  Sex: Male
  Weight: 47.6 kg

DRUGS (2)
  1. SIGNIFOR [Suspect]
     Active Substance: PASIREOTIDE
     Indication: PITUITARY-DEPENDENT CUSHING^S SYNDROME
     Dosage: 1.2 MG/DL, UNK
     Route: 058
     Dates: start: 20160512, end: 20170505
  2. CORTISONE ACETATE. [Concomitant]
     Active Substance: CORTISONE ACETATE
     Indication: ADRENAL INSUFFICIENCY
     Dosage: 37.5 MG, UNK
     Route: 065
     Dates: start: 20170526

REACTIONS (3)
  - Hydrocholecystis [Recovered/Resolved]
  - Cortisol increased [Recovered/Resolved]
  - Dyspnoea [Recovered/Resolved]

NARRATIVE: CASE EVENT DATE: 20170502
